FAERS Safety Report 5997172-4 (Version None)
Quarter: 2008Q4

REPORT INFORMATION
  Report Type: 
  Country: None (occurrence: None)
  Receive Date: 20081212
  Receipt Date: 20081105
  Transmission Date: 20090506
  Serious: No
  Sender: FDA-Public Use
  Company Number: US-ABBOTT-08P-163-0485653-00

PATIENT
  Sex: Male
  Weight: 93.07 kg

DRUGS (3)
  1. HUMIRA [Suspect]
     Indication: PSORIATIC ARTHROPATHY
     Route: 058
     Dates: start: 20060901, end: 20080901
  2. HUMIRA [Suspect]
     Indication: CROHN'S DISEASE
     Route: 058
     Dates: start: 20081001
  3. MELOXICAM [Concomitant]
     Indication: ARTHRITIS
     Route: 048

REACTIONS (3)
  - CONJUNCTIVITIS [None]
  - CROHN'S DISEASE [None]
  - PSORIATIC ARTHROPATHY [None]
